FAERS Safety Report 15291399 (Version 2)
Quarter: 2018Q4

REPORT INFORMATION
  Report Type: Spontaneous
  Country: US (occurrence: US)
  Receive Date: 20180817
  Receipt Date: 20181217
  Transmission Date: 20190204
  Serious: No
  Sender: FDA-Public Use
  Company Number: US-PFIZER INC-2018327924

PATIENT
  Age: 9 Year
  Sex: Female

DRUGS (2)
  1. GENOTROPIN [Suspect]
     Active Substance: SOMATROPIN
     Indication: BODY HEIGHT BELOW NORMAL
     Dosage: 1.2 MG, CYCLIC (ALTERNATING DOSES TO ACHIEVE 1.3 MG DAILY DOSE FOR 6 DAYS A WEEK)
     Dates: start: 20180608
  2. GENOTROPIN [Suspect]
     Active Substance: SOMATROPIN
     Dosage: 1.4 MG, CYCLIC (ALTERNATING DOSES TO ACHIEVE 1.3 MG DAILY DOSE FOR 6 DAYS A WEEK)
     Dates: start: 20180608

REACTIONS (1)
  - Pyrexia [Not Recovered/Not Resolved]

NARRATIVE: CASE EVENT DATE: 20180809
